FAERS Safety Report 7627936-2 (Version None)
Quarter: 2011Q3

REPORT INFORMATION
  Report Type: 
  Country: None (occurrence: None)
  Receive Date: 20110722
  Receipt Date: 20110708
  Transmission Date: 20111222
  Serious: Yes (Hospitalization)
  Sender: FDA-Public Use
  Company Number: JP-MYLANLABS-2011S1008348

PATIENT
  Age: 68 Year
  Sex: Female

DRUGS (4)
  1. DECADRON PHOSPHATE [Concomitant]
     Indication: PREMEDICATION
     Route: 042
     Dates: start: 20110421, end: 20110421
  2. GRANISETRON [Concomitant]
     Indication: PREMEDICATION
     Route: 042
     Dates: start: 20110421, end: 20110421
  3. EPIRUBICIN [Suspect]
     Indication: BREAST CANCER
     Route: 041
     Dates: start: 20110421, end: 20110421
  4. GAMOFA [Concomitant]
     Indication: PREMEDICATION
     Route: 042
     Dates: start: 20110421, end: 20110421

REACTIONS (4)
  - DYSPHORIA [None]
  - HYPERTENSION [None]
  - TACHYCARDIA [None]
  - FEELING HOT [None]
